FAERS Safety Report 23599531 (Version 1)
Quarter: 2024Q1

REPORT INFORMATION
  Report Type: Spontaneous
  Country: FR (occurrence: FR)
  Receive Date: 20240306
  Receipt Date: 20240306
  Transmission Date: 20240410
  Serious: Yes (Other)
  Sender: FDA-Public Use
  Company Number: FR-TEVA-VS-3165412

PATIENT
  Age: 65 Year
  Sex: Male
  Weight: 85 kg

DRUGS (12)
  1. FILGRASTIM [Suspect]
     Active Substance: FILGRASTIM
     Indication: Product used for unknown indication
     Dosage: 30 MU / 0.5 ML SOLUTION FOR INJECTION OR PERFUSION,
     Route: 051
     Dates: start: 20240105
  2. FILGRASTIM [Suspect]
     Active Substance: FILGRASTIM
     Indication: Product used for unknown indication
     Dosage: 30 MU / 0.5 ML SOLUTION FOR INJECTION OR PERFUSION,
     Route: 051
     Dates: start: 20240117, end: 20240119
  3. BISOPROLOL [Concomitant]
     Active Substance: BISOPROLOL\BISOPROLOL FUMARATE
     Dates: start: 201808
  4. DAFALGAN [Concomitant]
     Active Substance: ACETAMINOPHEN
     Dates: start: 2020
  5. OXYCODONE [Concomitant]
     Active Substance: OXYCODONE\OXYCODONE HYDROCHLORIDE
     Dates: start: 2022
  6. Silodosine 8 [Concomitant]
     Dates: start: 202205
  7. LEVOCETIRIZINE [Concomitant]
     Active Substance: LEVOCETIRIZINE
  8. Decapeptyl [Concomitant]
     Dosage: 1 INJECTION PER 3 MONTHS
     Dates: start: 202207
  9. Innovair 200 [Concomitant]
     Dates: start: 202301
  10. Xgeva 120 [Concomitant]
     Dates: start: 202309
  11. XTANDI [Concomitant]
     Active Substance: ENZALUTAMIDE
     Dates: start: 202207
  12. ALBUTEROL [Concomitant]
     Active Substance: ALBUTEROL
     Dosage: IF REQUIRED
     Dates: start: 2012

REACTIONS (5)
  - Tachycardia [Recovered/Resolved]
  - Blood pressure decreased [Recovered/Resolved]
  - Headache [Recovered/Resolved]
  - Condition aggravated [Recovered/Resolved]
  - Product substitution [Unknown]

NARRATIVE: CASE EVENT DATE: 20240107
